FAERS Safety Report 9850908 (Version 3)
Quarter: 2014Q1

REPORT INFORMATION
  Report Type: Spontaneous
  Country: US (occurrence: US)
  Receive Date: 20140128
  Receipt Date: 20140213
  Transmission Date: 20141002
  Serious: Yes (Hospitalization)
  Sender: FDA-Public Use
  Company Number: US-JNJFOC-20140108408

PATIENT
  Age: 67 Year
  Sex: Female

DRUGS (8)
  1. IMBRUVICA [Suspect]
     Indication: MANTLE CELL LYMPHOMA
     Route: 048
     Dates: start: 20131201, end: 20131211
  2. ESTRING [Concomitant]
     Route: 067
  3. COLACE [Concomitant]
     Route: 048
  4. COMPAZINE [Concomitant]
     Route: 048
  5. SENNOSIDES A AND B [Concomitant]
     Route: 048
  6. TRAZODONE [Concomitant]
     Route: 048
  7. SYNTHROID [Concomitant]
     Route: 048
  8. CALCIUM CARBONATE AND VITAMIN D [Concomitant]
     Route: 048

REACTIONS (12)
  - Viral pharyngitis [Recovered/Resolved]
  - Stridor [Recovered/Resolved]
  - Malaise [Recovered/Resolved]
  - Nausea [Recovered/Resolved]
  - Transaminases increased [Recovered/Resolved]
  - Mental status changes [Recovered/Resolved]
  - Hypophagia [Recovered/Resolved]
  - Rash [Recovered/Resolved]
  - Vomiting [Recovered/Resolved]
  - Diarrhoea [Recovered/Resolved]
  - Haematuria [Recovered/Resolved]
  - Fatigue [Recovered/Resolved]
